FAERS Safety Report 21936002 (Version 1)
Quarter: 2023Q1

REPORT INFORMATION
  Report Type: Spontaneous
  Country: CN (occurrence: CN)
  Receive Date: 20230201
  Receipt Date: 20230201
  Transmission Date: 20230418
  Serious: Yes (Hospitalization)
  Sender: FDA-Public Use
  Company Number: CN-BAYER-2023A012212

PATIENT
  Age: 81 Year
  Sex: Female

DRUGS (2)
  1. GLUCOBAY [Interacting]
     Active Substance: ACARBOSE
     Indication: Diabetes mellitus
     Dosage: 50 MG, TID
     Route: 048
     Dates: start: 20230114, end: 20230116
  2. GLIMEPIRIDE [Interacting]
     Active Substance: GLIMEPIRIDE
     Indication: Diabetes mellitus
     Dosage: 6 MG, QD
     Route: 048
     Dates: start: 20230114, end: 20230116

REACTIONS (3)
  - Hypoglycaemic coma [Recovering/Resolving]
  - Depressed level of consciousness [Recovering/Resolving]
  - Unresponsive to stimuli [Recovering/Resolving]

NARRATIVE: CASE EVENT DATE: 20230116
